FAERS Safety Report 7208142-2 (Version None)
Quarter: 2010Q4

REPORT INFORMATION
  Report Type: 
  Country: None (occurrence: None)
  Receive Date: 20101230
  Receipt Date: 20101230
  Transmission Date: 20110411
  Serious: Yes (Other)
  Sender: FDA-Public Use
  Company Number: None

PATIENT
  Sex: Male
  Weight: 95.2554 kg

DRUGS (1)
  1. ABILIFY [Suspect]
     Indication: BIPOLAR II DISORDER
     Dosage: ABILIFY 15MG DAILY PO
     Route: 048
     Dates: start: 20080807, end: 20100414

REACTIONS (1)
  - TARDIVE DYSKINESIA [None]
